FAERS Safety Report 4951953-4 (Version None)
Quarter: 2006Q1

REPORT INFORMATION
  Report Type: 
  Country: None (occurrence: None)
  Receive Date: 20060320
  Receipt Date: 20060307
  Transmission Date: 20060701
  Serious: Yes (Hospitalization)
  Sender: FDA-Public Use
  Company Number: 2006029240

PATIENT
  Age: 83 Year
  Sex: Female

DRUGS (5)
  1. SUTENT [Suspect]
     Indication: GASTROINTESTINAL STROMAL TUMOUR
     Dosage: SEE IMAGE, ORAL
     Route: 048
     Dates: start: 20051115
  2. SUTENT [Suspect]
     Indication: GASTROINTESTINAL STROMAL TUMOUR
     Dosage: SEE IMAGE, ORAL
     Route: 048
     Dates: start: 20051115
  3. SIMVASTATIN [Concomitant]
  4. SOLPRIN (ACETYLSALICYLIC CALCIUM) [Concomitant]
  5. ALDACTONE [Concomitant]

REACTIONS (6)
  - ACUTE MYOCARDIAL INFARCTION [None]
  - ANAEMIA [None]
  - DRUG TOXICITY [None]
  - PYREXIA [None]
  - RECTAL HAEMORRHAGE [None]
  - SYNCOPE [None]
